FAERS Safety Report 11848286 (Version 1)
Quarter: 2015Q4

REPORT INFORMATION
  Report Type: Report from Study
  Country: ZA (occurrence: ZA)
  Receive Date: 20151217
  Receipt Date: 20151217
  Transmission Date: 20160305
  Serious: Yes (Hospitalization, Other)
  Sender: FDA-Public Use
  Company Number: ZA-BRISTOL-MYERS SQUIBB COMPANY-14223465

PATIENT
  Age: 40 Year
  Sex: Female

DRUGS (4)
  1. EFAVIRENZ [Suspect]
     Active Substance: EFAVIRENZ
     Indication: HIV INFECTION
     Dosage: 600 MG, QD
     Route: 048
     Dates: start: 20071212
  2. STAVUDINE. [Suspect]
     Active Substance: STAVUDINE
     Indication: RETROVIRAL INFECTION
     Dosage: 60 MG, QD
     Route: 048
     Dates: start: 20071212
  3. EPIVIR [Suspect]
     Active Substance: LAMIVUDINE
     Indication: RETROVIRAL INFECTION
     Dosage: 300 MG, QD
     Route: 048
     Dates: start: 20071212
  4. RIFAFOUR [Concomitant]
     Active Substance: ETHAMBUTOL HYDROCHLORIDE\ISONIAZID\PYRAZINAMIDE\RIFAMYCIN
     Indication: TUBERCULOSIS
     Dosage: 1 DF, QD
     Route: 065
     Dates: start: 20071107

REACTIONS (4)
  - Stillbirth [Unknown]
  - Respiratory distress [Unknown]
  - Maternal exposure during pregnancy [Recovered/Resolved]
  - Premature labour [Recovered/Resolved]

NARRATIVE: CASE EVENT DATE: 20071212
